FAERS Safety Report 5404999-6 (Version None)
Quarter: 2007Q3

REPORT INFORMATION
  Report Type: 
  Country: None (occurrence: None)
  Receive Date: 20070803
  Receipt Date: 20070724
  Transmission Date: 20080115
  Serious: Yes (Other)
  Sender: FDA-Public Use
  Company Number: US-JNJFOC-20070800250

PATIENT
  Sex: Female

DRUGS (3)
  1. DOXIL [Suspect]
     Indication: NEOPLASM MALIGNANT
     Route: 042
  2. DOXIL [Suspect]
     Indication: OVARIAN NEOPLASM
     Route: 042
  3. DECADRON [Concomitant]
     Indication: RASH
     Route: 042

REACTIONS (3)
  - EROSIVE OESOPHAGITIS [None]
  - INSOMNIA [None]
  - RASH [None]
